FAERS Safety Report 6553488-4 (Version None)
Quarter: 2010Q1

REPORT INFORMATION
  Report Type: 
  Country: None (occurrence: None)
  Receive Date: 20100122
  Receipt Date: 20100106
  Transmission Date: 20100710
  Serious: Yes (Death)
  Sender: FDA-Public Use
  Company Number: 2009AC000013

PATIENT
  Sex: Male

DRUGS (10)
  1. DIGOXIN [Suspect]
     Dosage: 0.25 MG; PO
     Route: 048
     Dates: start: 20060501
  2. CRESTOR [Concomitant]
  3. FUROSEMIDE [Concomitant]
  4. AMILORIDE HYDROCHLORIDE [Concomitant]
  5. TOPROL-XL [Concomitant]
  6. METOPROLOL TARTRATE [Concomitant]
  7. ISOSORBIDE [Concomitant]
  8. ENALAPRIL MALEATE [Concomitant]
  9. PRAVACHOL [Concomitant]
  10. PRAVASTATIN [Concomitant]

REACTIONS (2)
  - ECONOMIC PROBLEM [None]
  - MULTIPLE INJURIES [None]
